FAERS Safety Report 6684784-8 (Version None)
Quarter: 2010Q2

REPORT INFORMATION
  Report Type: 
  Country: None (occurrence: None)
  Receive Date: 20100416
  Receipt Date: 20100408
  Transmission Date: 20101027
  Serious: Yes (Hospitalization)
  Sender: FDA-Public Use
  Company Number: US-ELI_LILLY_AND_COMPANY-US201002005485

PATIENT
  Sex: Male
  Weight: 106.58 kg

DRUGS (13)
  1. BYETTA [Suspect]
     Indication: TYPE 2 DIABETES MELLITUS
     Dosage: 5 UG, 2/D
     Route: 058
  2. BYETTA [Suspect]
     Dosage: 10 UG, 2/D
     Route: 058
  3. METFORMIN [Concomitant]
  4. LISINOPRIL [Concomitant]
  5. LOVAZA [Concomitant]
  6. PLAVIX [Concomitant]
  7. LIPITOR [Concomitant]
  8. NITROGLYCERIN [Concomitant]
     Dosage: UNK, AS NEEDED
     Route: 060
  9. CALCIUM CARBONATE [Concomitant]
  10. ASPIRIN [Concomitant]
     Dosage: 81 MG, DAILY (1/D)
     Route: 048
  11. MULTI-VITAMIN [Concomitant]
  12. B12-VITAMIN [Concomitant]
     Dosage: UNK, DAILY (1/D)
     Route: 048
  13. ERGOCALCIFEROL/CALCIUM PHOSP/CALCIUM SOD LACT [Concomitant]

REACTIONS (6)
  - ANAEMIA [None]
  - BLOOD GLUCOSE INCREASED [None]
  - DECREASED APPETITE [None]
  - INJECTION SITE INFECTION [None]
  - MUSCULOSKELETAL DISCOMFORT [None]
  - OEDEMA PERIPHERAL [None]
